FAERS Safety Report 24625155 (Version 1)
Quarter: 2024Q4

REPORT INFORMATION
  Report Type: Spontaneous
  Country: IT (occurrence: IT)
  Receive Date: 20241115
  Receipt Date: 20241115
  Transmission Date: 20250114
  Serious: Yes (Other)
  Sender: SK LIFE SCIENCE
  Company Number: IT-ACRAF SpA-2024-036301

PATIENT

DRUGS (2)
  1. XCOPRI [Interacting]
     Active Substance: CENOBAMATE
     Indication: Product used for unknown indication
     Dosage: 350 MILLIGRAM
     Route: 065
     Dates: start: 202409
  2. CLOBAZAM [Interacting]
     Active Substance: CLOBAZAM
     Indication: Product used for unknown indication
     Dosage: UNK
     Route: 065

REACTIONS (3)
  - Hyperammonaemia [Unknown]
  - Sopor [Unknown]
  - Drug interaction [Unknown]
